FAERS Safety Report 17696084 (Version 1)
Quarter: 2020Q2

REPORT INFORMATION
  Report Type: Report from Study
  Country: US (occurrence: US)
  Receive Date: 20200422
  Receipt Date: 20200422
  Transmission Date: 20200714
  Serious: Yes (Hospitalization)
  Sender: FDA-Public Use
  Company Number: US-ROCHE-2586103

PATIENT
  Sex: Male

DRUGS (2)
  1. PULMOZYME [Suspect]
     Active Substance: DORNASE ALFA
     Indication: HYPOXIA
     Dosage: NEBULIZAR LOS CONTENIDOS DE 1 FRASCOS 2.5 MILI GRA
     Route: 065
  2. PULMOZYME [Suspect]
     Active Substance: DORNASE ALFA
     Indication: LENNOX-GASTAUT SYNDROME

REACTIONS (3)
  - Off label use [Unknown]
  - Intentional product use issue [Unknown]
  - Pneumonia [Unknown]
